FAERS Safety Report 4881795-X (Version None)
Quarter: 2006Q1

REPORT INFORMATION
  Report Type: 
  Country: None (occurrence: None)
  Receive Date: 20060112
  Receipt Date: 20060112
  Transmission Date: 20060701
  Serious: Yes (Hospitalization)
  Sender: FDA-Public Use
  Company Number: None

PATIENT
  Age: 59 Year
  Sex: Female
  Weight: 61.1 kg

DRUGS (1)
  1. WARFARIN [Suspect]
     Dosage: 5MG  PM PO
     Route: 048

REACTIONS (4)
  - DEEP VEIN THROMBOSIS [None]
  - HAEMOPTYSIS [None]
  - INTERNATIONAL NORMALISED RATIO INCREASED [None]
  - MICROSCOPIC POLYANGIITIS [None]
